FAERS Safety Report 8679120 (Version 2)
Quarter: 2012Q4

REPORT INFORMATION
  Report Type: Spontaneous
  Country: DE (occurrence: None)
  Receive Date: 20120705
  Receipt Date: 20120817
  Transmission Date: 20130627
  Serious: Yes (Hospitalization)
  Sender: FDA-Public Use
  Company Number: 2012HGS-003773

PATIENT
  Age: 34 Year
  Sex: Female
  Weight: 55 kg

DRUGS (9)
  1. BENLYSTA [Suspect]
     Indication: SYSTEMIC LUPUS ERYTHEMATOSUS
     Dosage: INTRAVENOUS DRIP
     Route: 041
     Dates: start: 20120229, end: 20120614
  2. METHOTREXATE [Concomitant]
  3. FOLSAN (FOLIC ACID)(FOLIC ACID) [Concomitant]
  4. QUENSYL (HYDROXYCHLOROQUINE SULFATE)(HYDROXYCHLOROQUINE SULFATE) [Concomitant]
  5. PREDNISOLON (PREDNISOLONE)(PREDNISOLONE) [Concomitant]
  6. PANTOPRAZOLE 9PANTOPRAZOLE) [Concomitant]
  7. VALORON N (VALORON N /00628301/) (NALOXONE HYDROCHLORIDE, TILIDINE HYDROCHLORIDE) [Concomitant]
  8. ERGOCALCIFEROL (ERGOCALCIFEROL) [Concomitant]
  9. ALENDRONATE SODIUM (ALENDRONATE SODIUM [Concomitant]

REACTIONS (13)
  - Dyspnoea [None]
  - Diplopia [None]
  - Vision blurred [None]
  - Nausea [None]
  - Chills [None]
  - Hypersensitivity [None]
  - Presyncope [None]
  - Cardiovascular disorder [None]
  - Malaise [None]
  - Dizziness [None]
  - Feeling cold [None]
  - Tremor [None]
  - Respiratory disorder [None]
